FAERS Safety Report 10442822 (Version 1)
Quarter: 2014Q3

REPORT INFORMATION
  Report Type: Other
  Country: DE (occurrence: DE)
  Receive Date: 20140909
  Receipt Date: 20140909
  Transmission Date: 20150326
  Serious: Yes (Congenital Anomaly, Other)
  Sender: FDA-Public Use
  Company Number: DE-MYLAN-2014M1003147

PATIENT

DRUGS (2)
  1. PREDNISOLON [Suspect]
     Active Substance: PREDNISOLONE
     Indication: RHEUMATOID ARTHRITIS
     Dosage: 10 [MG/D ] 0. - 31.2. GESTATIONAL WEEK
     Route: 064
  2. SULFASALAZINE DELAYED-RELEASE [Suspect]
     Active Substance: SULFASALAZINE
     Indication: RHEUMATOID ARTHRITIS
     Dosage: 2 [G/D ] 0. - 31.2. GESTATIONAL WEEK
     Route: 064

REACTIONS (4)
  - Atrial septal defect [Unknown]
  - Small for dates baby [Recovering/Resolving]
  - Haemangioma congenital [Unknown]
  - Foetal exposure during pregnancy [Unknown]

NARRATIVE: CASE EVENT DATE: 20131214
